FAERS Safety Report 8360013-4 (Version None)
Quarter: 2012Q2

REPORT INFORMATION
  Report Type: 
  Country: None (occurrence: None)
  Receive Date: 20120515
  Receipt Date: 20120511
  Transmission Date: 20120825
  Serious: No
  Sender: FDA-Public Use
  Company Number: PHEH2012US010013

PATIENT
  Sex: Male

DRUGS (2)
  1. LEVOFLOXACIN [Concomitant]
  2. TASIGNA [Suspect]
     Dosage: 600 MG, DAILY
     Route: 048

REACTIONS (1)
  - DIARRHOEA [None]
